FAERS Safety Report 11593748 (Version 2)
Quarter: 2016Q1

REPORT INFORMATION
  Report Type: Report from Study
  Country: US (occurrence: US)
  Receive Date: 20151005
  Receipt Date: 20160217
  Transmission Date: 20160525
  Serious: Yes (Other)
  Sender: FDA-Public Use
  Company Number: US-AMGEN-USASL2015102245

PATIENT
  Age: 54 Year
  Sex: Male

DRUGS (2)
  1. ENBREL [Suspect]
     Active Substance: ETANERCEPT
     Indication: RHEUMATOID ARTHRITIS
     Dosage: 50 MG, QWK
     Route: 065
     Dates: start: 20150925
  2. LEFLUNOMIDE. [Concomitant]
     Active Substance: LEFLUNOMIDE
     Dosage: 20 MG, QD ONCE PER DAY

REACTIONS (10)
  - Arthropathy [Recovered/Resolved]
  - Fatigue [Unknown]
  - Muscle rupture [Unknown]
  - Back injury [Unknown]
  - Intervertebral disc disorder [Unknown]
  - Nodule [Recovering/Resolving]
  - Back pain [Not Recovered/Not Resolved]
  - Arthralgia [Not Recovered/Not Resolved]
  - Musculoskeletal discomfort [Unknown]
  - Osteoarthritis [Unknown]

NARRATIVE: CASE EVENT DATE: 201509
